FAERS Safety Report 6162877-1 (Version None)
Quarter: 2009Q2

REPORT INFORMATION
  Report Type: 
  Country: None (occurrence: None)
  Receive Date: 20090421
  Receipt Date: 20081217
  Transmission Date: 20091009
  Serious: No
  Sender: FDA-Public Use
  Company Number: US-ASTRAZENECA-2008UW28277

PATIENT
  Sex: Male

DRUGS (2)
  1. TOPROL-XL [Suspect]
     Dosage: 50 MG
     Route: 048
  2. AMOXICILLIN [Concomitant]

REACTIONS (1)
  - TOOTH INFECTION [None]
